FAERS Safety Report 14724158 (Version 2)
Quarter: 2018Q2

REPORT INFORMATION
  Report Type: Spontaneous
  Country: US (occurrence: US)
  Receive Date: 20180405
  Receipt Date: 20180409
  Transmission Date: 20180711
  Serious: Yes (Other)
  Sender: FDA-Public Use
  Company Number: US-PFIZER INC-2018137243

PATIENT
  Age: 64 Year
  Sex: Female

DRUGS (4)
  1. TRICOR [Suspect]
     Active Substance: FENOFIBRATE
     Dosage: 48 MG, DAILY
  2. CRESTOR [Suspect]
     Active Substance: ROSUVASTATIN CALCIUM
     Dosage: 10 MG, DAILY
  3. NEXIUM [Concomitant]
     Active Substance: ESOMEPRAZOLE MAGNESIUM
     Indication: DYSPEPSIA
     Dosage: UNK, AS NEEDED
  4. DUAVEE [Suspect]
     Active Substance: BAZEDOXIFENE ACETATE\ESTROGENS, CONJUGATED
     Indication: HOT FLUSH
     Dosage: 1 DF, DAILY

REACTIONS (9)
  - Pain in extremity [Unknown]
  - Weight increased [Unknown]
  - Cataract [Unknown]
  - Memory impairment [Unknown]
  - Vision blurred [Unknown]
  - Muscular weakness [Unknown]
  - Blood glucose increased [Unknown]
  - Blindness unilateral [Not Recovered/Not Resolved]
  - Hot flush [Unknown]
